FAERS Safety Report 10157577 (Version 1)
Quarter: 2014Q2

REPORT INFORMATION
  Report Type: Spontaneous
  Country: DE (occurrence: DE)
  Receive Date: 20140507
  Receipt Date: 20140507
  Transmission Date: 20141212
  Serious: Yes (Hospitalization, Congenital Anomaly, Other)
  Sender: FDA-Public Use
  Company Number: DE-PFIZER INC-2014120077

PATIENT
  Age: 1 Day
  Sex: Female
  Weight: 2.19 kg

DRUGS (4)
  1. LYRICA [Suspect]
     Indication: RESTLESS LEGS SYNDROME
     Dosage: 150 MG, 1X/DAY
     Route: 064
  2. LYRICA [Suspect]
     Dosage: 150 MG, 2X/DAY
     Route: 064
  3. LYRICA [Suspect]
     Dosage: 150 MG, 3X/DAY
     Route: 064
  4. PARACETAMOL [Concomitant]
     Indication: PAIN
     Dosage: 500 MG, 1X/DAY
     Route: 064

REACTIONS (9)
  - Maternal exposure during pregnancy [Unknown]
  - Premature baby [Recovered/Resolved]
  - Patent ductus arteriosus [Unknown]
  - Ovarian cyst [Unknown]
  - Hydrocephalus [Recovering/Resolving]
  - Cerebral haemorrhage [Recovering/Resolving]
  - Cerebral ventricle dilatation [Unknown]
  - Hypotonia neonatal [Unknown]
  - Hyperbilirubinaemia neonatal [Unknown]
